FAERS Safety Report 7537681-X (Version None)
Quarter: 2011Q2

REPORT INFORMATION
  Report Type: 
  Country: None (occurrence: None)
  Receive Date: 20110609
  Receipt Date: 20071012
  Transmission Date: 20111010
  Serious: Yes (Death, Hospitalization, Other)
  Sender: FDA-Public Use
  Company Number: PHHO2006MX22158

PATIENT
  Sex: Male
  Weight: 69 kg

DRUGS (9)
  1. GLYBURIDE [Concomitant]
  2. ZOLEDRONIC ACID [Suspect]
     Indication: METASTASES TO BONE
     Dosage: 4 MG, Q3MO
     Route: 042
     Dates: start: 20060531, end: 20061122
  3. GLYBURIDE AND METFORMIN HCL [Concomitant]
     Dosage: UNK
  4. CAPTOPRIL [Concomitant]
     Dosage: UNK
  5. CALCIUM CARBONATE [Concomitant]
     Indication: PROSTATE CANCER
  6. FOSFOMYCIN [Concomitant]
     Dates: start: 20061123
  7. FLUTAMIDE [Concomitant]
  8. VITAMIN D [Concomitant]
     Indication: PROSTATE CANCER
  9. TRAMADOL HYDROCHLORIDE/ACETAMINOPHEN [Concomitant]
     Dates: start: 20061004

REACTIONS (20)
  - METASTASES TO BONE [None]
  - RADICULAR SYNDROME [None]
  - BLOOD GLUCOSE INCREASED [None]
  - HYPERCALCAEMIA [None]
  - BLOOD CREATININE INCREASED [None]
  - NUTRITIONAL CONDITION ABNORMAL [None]
  - MULTI-ORGAN FAILURE [None]
  - BLOOD UREA INCREASED [None]
  - URINARY TRACT INFECTION [None]
  - BACK PAIN [None]
  - URINARY RETENTION [None]
  - CHEST PAIN [None]
  - HYPERLIPIDAEMIA [None]
  - METABOLIC DISORDER [None]
  - DIABETIC COMPLICATION [None]
  - DIABETES MELLITUS INADEQUATE CONTROL [None]
  - MYALGIA [None]
  - RENAL FAILURE ACUTE [None]
  - HYPERTENSION [None]
  - HYPOCALCAEMIA [None]
